FAERS Safety Report 11915760 (Version 3)
Quarter: 2018Q2

REPORT INFORMATION
  Report Type: Report from Study
  Country: BR (occurrence: BR)
  Receive Date: 20160114
  Receipt Date: 20180514
  Transmission Date: 20180711
  Serious: Yes (Hospitalization, Other)
  Sender: FDA-Public Use
  Company Number: BR-ROCHE-1692786

PATIENT
  Age: 77 Year
  Sex: Female
  Weight: 73 kg

DRUGS (10)
  1. LOSARTAN. [Concomitant]
     Active Substance: LOSARTAN
     Indication: HYPERTENSION
     Dosage: EVERY DAY
     Route: 065
  2. VITAMIN A [Concomitant]
     Active Substance: VITAMIN A
  3. VITAMIN E [Concomitant]
     Active Substance: .ALPHA.-TOCOPHEROL
  4. PARACETAMOL [Concomitant]
     Active Substance: ACETAMINOPHEN
     Route: 065
  5. ACTEMRA [Suspect]
     Active Substance: TOCILIZUMAB
     Indication: RHEUMATOID ARTHRITIS
     Route: 042
     Dates: start: 20140121
  6. ACTEMRA [Suspect]
     Active Substance: TOCILIZUMAB
     Route: 042
     Dates: start: 20161101
  7. SYNTHROID [Concomitant]
     Active Substance: LEVOTHYROXINE SODIUM
     Route: 065
  8. ANCORON [Concomitant]
     Active Substance: AMIODARONE HYDROCHLORIDE
     Indication: ARRHYTHMIA
     Route: 065
  9. CHOLECALCIFEROL [Concomitant]
     Active Substance: CHOLECALCIFEROL
     Route: 065
  10. NORIPURUM [Concomitant]
     Active Substance: IRON POLYMALTOSE
     Route: 065

REACTIONS (8)
  - Hip deformity [Recovering/Resolving]
  - Asthenia [Recovering/Resolving]
  - Confusional state [Not Recovered/Not Resolved]
  - Blood glucose abnormal [Unknown]
  - Diverticulitis [Recovered/Resolved]
  - Surgical failure [Recovered/Resolved]
  - Suture rupture [Recovered/Resolved]
  - Haemorrhage [Unknown]

NARRATIVE: CASE EVENT DATE: 201701
